FAERS Safety Report 8844205 (Version 2)
Quarter: 2012Q4

REPORT INFORMATION
  Report Type: 
  Country: DE (occurrence: DE)
  Receive Date: 20121016
  Receipt Date: 20121126
  Transmission Date: 20130627
  Serious: Yes (Other)
  Sender: FDA-Public Use
  Company Number: DE-PFIZER INC-2012253011

PATIENT
  Sex: Male

DRUGS (7)
  1. TAVOR [Suspect]
  2. VENLAFAXINE HYDROCHLORIDE [Suspect]
  3. RISPERIDONE [Suspect]
  4. HALOPERIDOL [Suspect]
     Dosage: UNK
  5. SEROQUEL [Suspect]
  6. KEPPRA [Suspect]
  7. MICTONORM [Suspect]

REACTIONS (9)
  - Unresponsive to stimuli [Unknown]
  - Diabetes mellitus [Unknown]
  - Malaise [Unknown]
  - Incontinence [Unknown]
  - Dysstasia [Unknown]
  - Fluid retention [Unknown]
  - Restlessness [Unknown]
  - Aggression [Unknown]
  - Parkinsonism [Unknown]
